FAERS Safety Report 6829243-4 (Version None)
Quarter: 2010Q3

REPORT INFORMATION
  Report Type: 
  Country: None (occurrence: None)
  Receive Date: 20100709
  Receipt Date: 20070308
  Transmission Date: 20110219
  Serious: No
  Sender: FDA-Public Use
  Company Number: US-PFIZER INC-2007019440

PATIENT
  Sex: Female
  Weight: 69.4 kg

DRUGS (4)
  1. CHANTIX [Suspect]
     Indication: SMOKING CESSATION THERAPY
     Dates: start: 20070228
  2. INSULIN [Concomitant]
  3. ADVIL LIQUI-GELS [Concomitant]
  4. ANTI-ASTHMATICS [Concomitant]

REACTIONS (4)
  - DECREASED APPETITE [None]
  - NAUSEA [None]
  - RESTLESSNESS [None]
  - SOMNOLENCE [None]
